FAERS Safety Report 8053116-5 (Version None)
Quarter: 2012Q1

REPORT INFORMATION
  Report Type: 
  Country: None (occurrence: None)
  Receive Date: 20120118
  Receipt Date: 20120112
  Transmission Date: 20120608
  Serious: Yes (Hospitalization)
  Sender: FDA-Public Use
  Company Number: US-SANOFI-AVENTIS-2012SA002538

PATIENT
  Age: 86 Year
  Sex: Male

DRUGS (1)
  1. LASIX [Suspect]
     Route: 048
     Dates: start: 20111221, end: 20111222

REACTIONS (5)
  - DEHYDRATION [None]
  - OEDEMA PERIPHERAL [None]
  - RENAL FAILURE ACUTE [None]
  - ENCEPHALOPATHY [None]
  - MENTAL STATUS CHANGES [None]
